FAERS Safety Report 19799667 (Version 3)
Quarter: 2022Q1

REPORT INFORMATION
  Report Type: Spontaneous
  Country: CA (occurrence: CA)
  Receive Date: 20210907
  Receipt Date: 20220321
  Transmission Date: 20220423
  Serious: Yes (Other)
  Sender: FDA-Public Use
  Company Number: CA-SAMSUNG BIOEPIS-SB-2021-21059

PATIENT
  Age: 66 Year
  Sex: Male
  Weight: 59 kg

DRUGS (1)
  1. INFLIXIMAB [Suspect]
     Active Substance: INFLIXIMAB
     Indication: Ankylosing spondylitis
     Route: 042

REACTIONS (11)
  - Concussion [Unknown]
  - Eye haemorrhage [Unknown]
  - Myalgia [Unknown]
  - Skin laceration [Unknown]
  - Scab [Unknown]
  - Road traffic accident [Unknown]
  - Heart rate decreased [Unknown]
  - Blood pressure diastolic increased [Unknown]
  - Musculoskeletal stiffness [Unknown]
  - Intentional product use issue [Unknown]
  - Off label use [Unknown]
